FAERS Safety Report 5468536-2 (Version None)
Quarter: 2007Q3

REPORT INFORMATION
  Report Type: 
  Country: None (occurrence: None)
  Receive Date: 20070926
  Receipt Date: 20070828
  Transmission Date: 20080115
  Serious: No
  Sender: FDA-Public Use
  Company Number: US-BRISTOL-MYERS SQUIBB COMPANY-13891395

PATIENT
  Age: 37 Year
  Sex: Female
  Weight: 58 kg

DRUGS (11)
  1. ORENCIA [Suspect]
     Indication: RHEUMATOID ARTHRITIS
     Dates: start: 20060623
  2. METHOTREXATE BRAND UNKNOWN [Concomitant]
  3. ATENOLOL [Concomitant]
  4. FLEXERIL [Concomitant]
  5. PAROXETINE [Concomitant]
  6. FOLIC ACID [Concomitant]
  7. FOSAMAX [Concomitant]
  8. HYDROXYCHLOROQUINE SULFATE [Concomitant]
  9. METADON [Concomitant]
  10. PREDNISONE [Concomitant]
  11. PRILOSEC [Concomitant]

REACTIONS (3)
  - ABDOMINAL PAIN [None]
  - FAECALOMA [None]
  - VOMITING [None]
